APPROVED DRUG PRODUCT: DICLOFENAC POTASSIUM
Active Ingredient: DICLOFENAC POTASSIUM
Strength: 50MG
Dosage Form/Route: TABLET;ORAL
Application: A075463 | Product #001 | TE Code: AB
Applicant: RK PHARMA INC
Approved: Jul 26, 1999 | RLD: No | RS: No | Type: RX